FAERS Safety Report 20817838 (Version 1)
Quarter: 2022Q2

REPORT INFORMATION
  Report Type: Spontaneous
  Country: CN (occurrence: CN)
  Receive Date: 20220512
  Receipt Date: 20220512
  Transmission Date: 20220721
  Serious: Yes (Other)
  Sender: FDA-Public Use
  Company Number: CN-MLMSERVICE-20220503-3539252-1

PATIENT
  Age: 63 Year
  Sex: Male

DRUGS (3)
  1. GEMCITABINE [Suspect]
     Active Substance: GEMCITABINE
     Indication: Lung squamous cell carcinoma stage III
     Dosage: INTERVAL: CYCLICAL
     Dates: start: 20200515
  2. NEDAPLATIN [Suspect]
     Active Substance: NEDAPLATIN
     Indication: Lung squamous cell carcinoma stage III
     Dosage: INTERVAL: CYCLICAL
     Dates: start: 20200515
  3. SINTILIMAB [Suspect]
     Active Substance: SINTILIMAB
     Indication: Lung squamous cell carcinoma stage III
     Dosage: ONCE EVERY 3 WEEKS, INTERVAL: CYCLICAL
     Dates: start: 20200515

REACTIONS (2)
  - Leukopenia [Unknown]
  - Rash [Unknown]

NARRATIVE: CASE EVENT DATE: 20200101
